FAERS Safety Report 10395295 (Version 2)
Quarter: 2014Q2

REPORT INFORMATION
  Report Type: Spontaneous
  Country: US (occurrence: None)
  Receive Date: 20130328
  Receipt Date: 20140604
  Transmission Date: 20141212
  Serious: Yes (Hospitalization)
  Sender: FDA-Public Use
  Company Number: 20120327CINRY2784

PATIENT
  Age: 42 Year
  Sex: Female
  Weight: 63.5 kg

DRUGS (9)
  1. CINRYZE (C1 ESTERASE INHIBITOR (HUMAN) 500 UNIT, INJECTION FOR INFUSIOIN) (C1 ESTERASE INHIBITOR (HUMAN)) [Suspect]
     Indication: HEREDITARY ANGIOEDEMA
     Dosage: 1000 UNIT, 1 IN 48 HR, INTRAVENOUS?
     Route: 042
     Dates: start: 201109, end: 2012
  2. CINRYZE (C1 ESTERASE INHIBITOR (HUMAN) 500 UNIT, INJECTION FOR INFUSIOIN) (C1 ESTERASE INHIBITOR (HUMAN)) [Suspect]
     Indication: PROPHYLAXIS
     Dosage: 1000 UNIT, 1 IN 48 HR, INTRAVENOUS?
     Route: 042
     Dates: start: 201109, end: 2012
  3. AMITIZA (LUBIPROSTONE) [Concomitant]
  4. FISH OIL (FISH OIL) [Concomitant]
  5. ATARAX (HYDROXYZINE) [Concomitant]
  6. KALBITOR [Concomitant]
  7. CLARITIN (LORATADINE) [Concomitant]
  8. ZOFRAN (ONDANSETRON) [Concomitant]
  9. NORCO (VICODIN) [Concomitant]

REACTIONS (3)
  - Hereditary angioedema [None]
  - Inappropriate schedule of drug administration [None]
  - Inappropriate schedule of drug administration [None]
